FAERS Safety Report 14606557 (Version 2)
Quarter: 2018Q2

REPORT INFORMATION
  Report Type: Spontaneous
  Country: US (occurrence: US)
  Receive Date: 20180307
  Receipt Date: 20180615
  Transmission Date: 20180711
  Serious: Yes (Death)
  Sender: FDA-Public Use
  Company Number: US-TAKEDA-2018MPI002002

PATIENT
  Sex: Female

DRUGS (1)
  1. NINLARO [Suspect]
     Active Substance: IXAZOMIB CITRATE
     Indication: PLASMA CELL MYELOMA
     Dosage: 4 MG, UNK
     Route: 048
     Dates: start: 20180113

REACTIONS (2)
  - Death [Fatal]
  - Lip injury [Recovering/Resolving]
